FAERS Safety Report 9472806 (Version 1)
Quarter: 2013Q3

REPORT INFORMATION
  Report Type: Spontaneous
  Country: US (occurrence: None)
  Receive Date: 20130820
  Receipt Date: 20130820
  Transmission Date: 20140515
  Serious: Yes (Death)
  Sender: FDA-Public Use
  Company Number: 2013US000556

PATIENT
  Sex: 0

DRUGS (3)
  1. GEMCITAIBINE [Suspect]
     Indication: PANCREATIC CARCINOMA
     Dosage: 1G/M2 INFUSED OVER 30 MINUTES ON DAYS 1,8,AND 15 OF EACH CYCLE
  2. OXAPLATIN [Suspect]
     Indication: PANCREATIC CARCINOMA
     Dosage: INFUSED OVER 90 MINUTES ON DAYS 1,AND 15 OF EACH CYCLE
  3. RADIATION THERAPY [Concomitant]

REACTIONS (2)
  - Malignant peritoneal neoplasm [None]
  - Infection [None]
